FAERS Safety Report 8095065-2 (Version None)
Quarter: 2012Q1

REPORT INFORMATION
  Report Type: 
  Country: None (occurrence: None)
  Receive Date: 20120131
  Receipt Date: 20101108
  Transmission Date: 20120608
  Serious: Yes (Hospitalization, Other)
  Sender: FDA-Public Use
  Company Number: US-BAYER-200934014NA

PATIENT
  Age: 29 Year
  Sex: Female
  Weight: 81 kg

DRUGS (16)
  1. YAZ [Suspect]
     Indication: PREMENSTRUAL SYNDROME
  2. XANAX [Concomitant]
     Indication: ANXIETY
     Route: 048
  3. IBUPROFEN [Concomitant]
  4. LEXAPRO [Concomitant]
     Indication: DEPRESSION
  5. YASMIN [Suspect]
     Indication: PREMENSTRUAL SYNDROME
  6. YASMIN [Suspect]
  7. NEXIUM [Concomitant]
     Dosage: 10 MG, UNK
     Dates: start: 20070301
  8. YAZ [Suspect]
  9. CELEXA [Concomitant]
     Indication: DEPRESSION
  10. YASMIN [Suspect]
     Indication: ORAL CONTRACEPTION
     Dosage: 1 DF (DAILY DOSE)
     Route: 048
     Dates: start: 20070301, end: 20070801
  11. LEXAPRO [Concomitant]
     Indication: ANXIETY
     Dosage: 20 MG, QD
     Route: 048
     Dates: start: 20040101, end: 20090101
  12. CELEXA [Concomitant]
     Indication: ANXIETY
     Dosage: UNK
     Route: 048
     Dates: start: 20091101
  13. ASPIRIN [Concomitant]
     Dosage: 81 MG, QD
  14. YAZ [Suspect]
     Indication: ORAL CONTRACEPTION
     Dosage: UNK
     Route: 048
     Dates: start: 20070327, end: 20070831
  15. PRILOSEC [Concomitant]
     Dosage: UNK UNK, QD
     Route: 048
     Dates: start: 20070801
  16. TENORMIN [Concomitant]
     Dosage: 50 MG, TID
     Route: 048
     Dates: start: 20070801

REACTIONS (2)
  - PULMONARY EMBOLISM [None]
  - DEEP VEIN THROMBOSIS [None]
